FAERS Safety Report 21364336 (Version 2)
Quarter: 2022Q4

REPORT INFORMATION
  Report Type: Report from Study
  Country: US (occurrence: US)
  Receive Date: 20220922
  Receipt Date: 20221124
  Transmission Date: 20230113
  Serious: No
  Sender: FDA-Public Use
  Company Number: US-ABBVIE-4128262

PATIENT
  Sex: Male

DRUGS (3)
  1. HUMIRA [Suspect]
     Active Substance: ADALIMUMAB
     Indication: Crohn^s disease
     Dosage: CF?FORM STRENGTH 40 MILLIGRAM
     Route: 058
  2. Covid-19 vaccine [Concomitant]
     Indication: COVID-19 immunisation
     Dosage: 1 IN ONCE?COVID VACCINE
     Route: 030
  3. Covid-19 vaccine [Concomitant]
     Indication: COVID-19 immunisation
     Dosage: 1 IN ONCE?BOOSTER DOSE
     Route: 030

REACTIONS (2)
  - Malaise [Not Recovered/Not Resolved]
  - Gastrooesophageal reflux disease [Not Recovered/Not Resolved]
